FAERS Safety Report 25887257 (Version 2)
Quarter: 2025Q4

REPORT INFORMATION
  Report Type: Spontaneous
  Country: MX (occurrence: MX)
  Receive Date: 20251006
  Receipt Date: 20251104
  Transmission Date: 20260117
  Serious: Yes (Other)
  Sender: BIOMARIN
  Company Number: MX-BIOMARINAP-MX-2025-169144

PATIENT
  Age: 1 Year
  Sex: Female
  Weight: 8.6 kg

DRUGS (1)
  1. VOXZOGO [Suspect]
     Active Substance: VOSORITIDE
     Indication: Osteochondrodysplasia
     Dosage: UNK, QD
     Dates: start: 20241129

REACTIONS (3)
  - Foramen magnum stenosis [Unknown]
  - Spinal cord compression [Recovering/Resolving]
  - Exostosis [Recovering/Resolving]
